FAERS Safety Report 9424767 (Version 2)
Quarter: 2014Q1

REPORT INFORMATION
  Report Type: Report from Study
  Country: US (occurrence: US)
  Receive Date: 20130729
  Receipt Date: 20140107
  Transmission Date: 20141002
  Serious: No
  Sender: FDA-Public Use
  Company Number: US-VERTEX PHARMACEUTICALS INC-2013-008054

PATIENT
  Age: 12 Year
  Sex: Female
  Weight: 42 kg

DRUGS (8)
  1. IVACAFTOR [Suspect]
     Indication: CYSTIC FIBROSIS
     Dosage: 150 MG, BID
     Route: 048
     Dates: start: 20120410
  2. CREON [Concomitant]
     Indication: PANCREATIC INSUFFICIENCY
     Dosage: 2 CAPSULES WITH MEALS AND SNACKS
  3. SOURCECF PEDIATRIC [Concomitant]
     Indication: PANCREATIC INSUFFICIENCY
     Dosage: 1 DF, QD
     Route: 048
  4. AZITHROMYCIN [Concomitant]
     Dosage: 250MG M, W, F
     Route: 048
  5. CONCERTA [Concomitant]
     Indication: ATTENTION DEFICIT/HYPERACTIVITY DISORDER
     Dosage: 36 MG, QD
     Route: 048
  6. ALBUTEROL [Concomitant]
     Indication: CYSTIC FIBROSIS LUNG
     Dosage: 1 DF, QD
     Route: 055
  7. HYPERTONIC SALINE SOLUTION [Concomitant]
     Indication: CYSTIC FIBROSIS LUNG
     Dosage: 4 ML, QD
     Route: 055
  8. MELATONIN [Concomitant]
     Indication: INSOMNIA
     Dosage: 5 MG, PRN
     Route: 048

REACTIONS (1)
  - Cataract [Not Recovered/Not Resolved]
